FAERS Safety Report 8775900 (Version 2)
Quarter: 2012Q4

REPORT INFORMATION
  Report Type: 
  Country: BE (occurrence: BE)
  Receive Date: 20120910
  Receipt Date: 20121009
  Transmission Date: 20130627
  Serious: Yes (Other)
  Sender: FDA-Public Use
  Company Number: BE-ROCHE-1116746

PATIENT
  Age: 60 Year
  Sex: Female

DRUGS (9)
  1. XOLAIR [Suspect]
     Indication: ASTHMA
     Dosage: 75/0.5 mg/ml
     Route: 058
     Dates: start: 20120817
  2. DUOVENT [Concomitant]
  3. VENTOLIN [Concomitant]
  4. SERETIDE [Concomitant]
  5. PANTOMED [Concomitant]
  6. ZALDIAR [Concomitant]
  7. REDOMEX [Concomitant]
  8. OXYGEN THERAPY [Concomitant]
  9. STEOVIT [Concomitant]

REACTIONS (11)
  - Bronchospasm [Recovered/Resolved]
  - Pharyngeal oedema [Recovered/Resolved]
  - Face oedema [Recovered/Resolved]
  - Diarrhoea [Recovered/Resolved]
  - Eczema [Recovered/Resolved]
  - Eczema [Recovered/Resolved]
  - Anaphylactic reaction [Recovered/Resolved]
  - Dyspnoea [Recovered/Resolved]
  - Pain in extremity [Recovered/Resolved]
  - Oedema peripheral [Recovered/Resolved]
  - Dyspnoea [Recovered/Resolved]
